FAERS Safety Report 23813154 (Version 1)
Quarter: 2024Q2

REPORT INFORMATION
  Report Type: Spontaneous
  Country: US (occurrence: US)
  Receive Date: 20240503
  Receipt Date: 20240503
  Transmission Date: 20240716
  Serious: Yes (Other)
  Sender: FDA-Public Use
  Company Number: US-AMNEAL PHARMACEUTICALS-2024-AMRX-00134

PATIENT
  Sex: Female

DRUGS (1)
  1. VIGABATRIN [Suspect]
     Active Substance: VIGABATRIN
     Indication: Product used for unknown indication
     Dosage: MIX 1 PACKET IN 10 ML OF WATER AND GIVE/TAKE 10 ML (500 MG) ONCE A DAY FOR 3 DAYS, THEN MIX 1 PACKET
     Route: 048

REACTIONS (2)
  - Seizure [Unknown]
  - Product use issue [Unknown]
